FAERS Safety Report 10780561 (Version 1)
Quarter: 2015Q1

REPORT INFORMATION
  Report Type: Spontaneous
  Country: US (occurrence: None)
  Receive Date: 20150209
  Receipt Date: 20150209
  Transmission Date: 20150721
  Serious: Yes (Other)
  Sender: FDA-Public Use
  Company Number: None

PATIENT
  Age: 66 Year
  Sex: Male
  Weight: 78.2 kg

DRUGS (21)
  1. ATORVASTATIN [Concomitant]
     Active Substance: ATORVASTATIN
  2. DUONEB [Concomitant]
     Active Substance: ALBUTEROL SULFATE\IPRATROPIUM BROMIDE
  3. NOREPINEPHRINE DRIP [Concomitant]
  4. FENTANYL. [Concomitant]
     Active Substance: FENTANYL
  5. FONDAPARINUX [Concomitant]
     Active Substance: FONDAPARINUX
  6. ASPIRIN. [Concomitant]
     Active Substance: ASPIRIN
  7. DEXMEDETOMIDINE [Concomitant]
     Active Substance: DEXMEDETOMIDINE
  8. TRAZODONE [Concomitant]
     Active Substance: TRAZODONE HYDROCHLORIDE
  9. THIAMINE [Concomitant]
     Active Substance: THIAMINE
  10. ACETAMINOPHEN. [Concomitant]
     Active Substance: ACETAMINOPHEN
  11. DOCUSATE [Concomitant]
     Active Substance: DOCUSATE
  12. FLUTICASONE/SALMETEROL [Concomitant]
     Active Substance: FLUTICASONE PROPIONATE\SALMETEROL XINAFOATE
  13. FOLIC ACID. [Concomitant]
     Active Substance: FOLIC ACID
  14. MULTIVITAMIN [Concomitant]
     Active Substance: VITAMINS
  15. LEVOFLOXACIN 750 MG MAJOR PHARM/DR.REDDY^S LAB [Suspect]
     Active Substance: LEVOFLOXACIN
     Indication: PRODUCT USED FOR UNKNOWN INDICATION
     Route: 048
     Dates: start: 20150128, end: 20150129
  16. VENTOLIN [Concomitant]
     Active Substance: ALBUTEROL SULFATE
  17. MIDAZOLAM [Concomitant]
     Active Substance: MIDAZOLAM\MIDAZOLAM HYDROCHLORIDE
  18. OXYCODONE [Concomitant]
     Active Substance: OXYCODONE
  19. POLYETHYLENE GLYCOL [Concomitant]
     Active Substance: POLYETHYLENE GLYCOLS
  20. NICOTINE TRANSDERMAL SYSTEM [Concomitant]
     Active Substance: NICOTINE
  21. SENNA [Concomitant]
     Active Substance: SENNA LEAF\SENNOSIDES\SENNOSIDES A AND B

REACTIONS (2)
  - Dysarthria [None]
  - Seizure [None]

NARRATIVE: CASE EVENT DATE: 20150130
